FAERS Safety Report 7762026-X (Version None)
Quarter: 2011Q3

REPORT INFORMATION
  Report Type: 
  Country: None (occurrence: None)
  Receive Date: 20110919
  Receipt Date: 20110919
  Transmission Date: 20111222
  Serious: Yes (Hospitalization)
  Sender: FDA-Public Use
  Company Number: None

PATIENT
  Sex: Male
  Weight: 26 kg

DRUGS (6)
  1. DEXAMETHASONE [Suspect]
     Dosage: 154 MG
  2. VINCRISTINE SULFATE [Suspect]
     Dosage: 5.6 MG
  3. METHOTREXATE [Suspect]
     Dosage: 24 MG
  4. LEUCOVORIN CALCIUM [Suspect]
     Dosage: 10 MG
  5. CYTARABINE [Suspect]
     Dosage: 70 MG
  6. ONCASPAR [Suspect]
     Dosage: 2300 IU

REACTIONS (6)
  - HEART RATE DECREASED [None]
  - HYPOTENSION [None]
  - OXYGEN SATURATION DECREASED [None]
  - PYREXIA [None]
  - URINE OUTPUT DECREASED [None]
  - GENERAL PHYSICAL HEALTH DETERIORATION [None]
